FAERS Safety Report 6463793-8 (Version None)
Quarter: 2009Q4

REPORT INFORMATION
  Report Type: 
  Country: None (occurrence: None)
  Receive Date: 20091201
  Receipt Date: 20091120
  Transmission Date: 20100525
  Serious: Yes (Hospitalization)
  Sender: FDA-Public Use
  Company Number: US-JNJFOC-20091106476

PATIENT
  Sex: Male
  Weight: 102.06 kg

DRUGS (4)
  1. DURAGESIC-100 [Suspect]
     Dosage: 100+100
     Route: 062
     Dates: start: 20020601, end: 20091101
  2. DURAGESIC-100 [Suspect]
     Indication: BACK PAIN
     Dosage: 100+100
     Route: 062
     Dates: start: 20020601, end: 20091101
  3. FENTANYL CITRATE [Suspect]
     Indication: BACK PAIN
     Dosage: 100+100
     Route: 062
     Dates: start: 20070101, end: 20070101
  4. DURAGESIC-100 [Suspect]
     Dosage: 100+100
     Route: 062
     Dates: start: 20091101

REACTIONS (9)
  - BACK INJURY [None]
  - BLOOD CHOLESTEROL INCREASED [None]
  - BLOOD TRIGLYCERIDES INCREASED [None]
  - HYPERTENSION [None]
  - INADEQUATE ANALGESIA [None]
  - MIGRAINE [None]
  - MUSCLE SPASMS [None]
  - PRODUCT QUALITY ISSUE [None]
  - WITHDRAWAL SYNDROME [None]
